FAERS Safety Report 7362096-7 (Version None)
Quarter: 2011Q1

REPORT INFORMATION
  Report Type: 
  Country: None (occurrence: None)
  Receive Date: 20110318
  Receipt Date: 20110310
  Transmission Date: 20110831
  Serious: Yes (Other)
  Sender: FDA-Public Use
  Company Number: US-CEPHALON-2011001127

PATIENT
  Sex: Female

DRUGS (1)
  1. FENTANYL CITRATE [Suspect]
     Route: 002
     Dates: start: 20040101

REACTIONS (11)
  - GLOSSODYNIA [None]
  - FLATULENCE [None]
  - ORAL DISCOMFORT [None]
  - DRY MOUTH [None]
  - COELIAC DISEASE [None]
  - CHEST PAIN [None]
  - EMBOLISM ARTERIAL [None]
  - DENTAL CARIES [None]
  - FLUSHING [None]
  - AUTOIMMUNE DISORDER [None]
  - TOOTH LOSS [None]
